FAERS Safety Report 9031144 (Version 3)
Quarter: 2013Q1

REPORT INFORMATION
  Report Type: Spontaneous
  Country: DK (occurrence: DK)
  Receive Date: 20130123
  Receipt Date: 20130207
  Transmission Date: 20140127
  Serious: Yes (Other)
  Sender: FDA-Public Use
  Company Number: DK-AMGEN-DNKSP2013003159

PATIENT
  Sex: Female

DRUGS (1)
  1. PROLIA [Suspect]
     Indication: PRODUCT USED FOR UNKNOWN INDICATION
     Dosage: UNK
     Dates: start: 20121001

REACTIONS (7)
  - Tympanic membrane perforation [Unknown]
  - Ear infection [Unknown]
  - Mouth ulceration [Recovered/Resolved]
  - Tongue blistering [Recovered/Resolved]
  - Dizziness [Unknown]
  - Ageusia [Recovered/Resolved]
  - Vaginal discharge [Recovered/Resolved]
